FAERS Safety Report 5242449-3 (Version None)
Quarter: 2007Q1

REPORT INFORMATION
  Report Type: 
  Country: None (occurrence: None)
  Receive Date: 20070221
  Receipt Date: 20070209
  Transmission Date: 20070707
  Serious: Yes (Death, Other)
  Sender: FDA-Public Use
  Company Number: DE-AMGEN-UK032046

PATIENT
  Age: 64 Year
  Sex: Male

DRUGS (2)
  1. ARANESP [Suspect]
     Indication: DIALYSIS
     Route: 058
     Dates: start: 20021029
  2. ERYPO [Suspect]
     Route: 058
     Dates: start: 20011215, end: 20021201

REACTIONS (6)
  - ANTI-ERYTHROPOIETIN ANTIBODY POSITIVE [None]
  - APLASIA PURE RED CELL [None]
  - CHEST PAIN [None]
  - DRUG INEFFECTIVE [None]
  - HEADACHE [None]
  - SUDDEN CARDIAC DEATH [None]
